FAERS Safety Report 13009730 (Version 3)
Quarter: 2016Q4

REPORT INFORMATION
  Report Type: Spontaneous
  Country: IT (occurrence: IT)
  Receive Date: 20161208
  Receipt Date: 20161227
  Transmission Date: 20170207
  Serious: Yes (Other)
  Sender: FDA-Public Use
  Company Number: IT-PFIZER INC-2016567339

PATIENT
  Age: 76 Year
  Sex: Male

DRUGS (3)
  1. CETUXIMAB [Suspect]
     Active Substance: CETUXIMAB
     Indication: LARYNGEAL CANCER
     Dosage: 400 UNK, UNK
     Dates: start: 201309, end: 201312
  2. GLIVEC [Suspect]
     Active Substance: IMATINIB MESYLATE
     Indication: CHRONIC MYELOID LEUKAEMIA
     Dosage: 400 MG, DAILY
     Dates: start: 2012
  3. CARBOPLATIN. [Suspect]
     Active Substance: CARBOPLATIN
     Indication: LARYNGEAL CANCER
     Dosage: 450 MG, CYCLIC (EVERY 21 DAYS)
     Dates: start: 201309, end: 201312

REACTIONS (3)
  - Malignant neoplasm progression [Unknown]
  - Laryngeal cancer stage III [Unknown]
  - Chronic myeloid leukaemia recurrent [Unknown]
